FAERS Safety Report 5041089-9 (Version None)
Quarter: 2006Q3

REPORT INFORMATION
  Report Type: 
  Country: None (occurrence: None)
  Receive Date: 20060703
  Receipt Date: 20060410
  Transmission Date: 20061208
  Serious: Yes (Other)
  Sender: FDA-Public Use
  Company Number: CA-ROCHE-444186

PATIENT
  Age: 20 Year
  Sex: Female

DRUGS (2)
  1. ACCUTANE [Suspect]
     Indication: DRUG USE FOR UNKNOWN INDICATION
     Dosage: AVERAGE DAILY DOSE OF 50 MG.
     Route: 065
  2. ORAL CONTRACEPTION [Concomitant]
     Route: 048

REACTIONS (1)
  - PULMONARY EMBOLISM [None]
